FAERS Safety Report 4961717-3 (Version None)
Quarter: 2006Q1

REPORT INFORMATION
  Report Type: 
  Country: None (occurrence: None)
  Receive Date: 20060329
  Receipt Date: 20060313
  Transmission Date: 20060701
  Serious: Yes (Hospitalization)
  Sender: FDA-Public Use
  Company Number: WAES 0603ARG00003

PATIENT
  Age: 59 Year
  Sex: Female

DRUGS (8)
  1. COZAAR [Suspect]
     Indication: HYPERTENSION
     Dosage: SEE IMAGE
     Route: 048
     Dates: start: 20000101, end: 20050802
  2. COZAAR [Suspect]
     Indication: HYPERTENSION
     Dosage: SEE IMAGE
     Route: 048
     Dates: start: 20050803, end: 20050803
  3. COZAAR [Suspect]
     Indication: HYPERTENSION
     Dosage: SEE IMAGE
     Route: 048
     Dates: start: 20050804, end: 20050807
  4. COZAAR [Suspect]
     Indication: HYPERTENSION
     Dosage: SEE IMAGE
     Route: 048
     Dates: start: 20050808
  5. CAP BROMAZEPAM [Suspect]
     Indication: ANXIETY
     Dosage: PO   ;  2 /DAILY PO
     Route: 048
     Dates: start: 19950101, end: 20050802
  6. CAP BROMAZEPAM [Suspect]
     Indication: ANXIETY
     Dosage: PO   ;  2 /DAILY PO
     Route: 048
     Dates: start: 20050803, end: 20050803
  7. ALBUTEROL SULFATE ( + ) IPRATROPIUM BROMID [Concomitant]
  8. PLACEBO [Concomitant]

REACTIONS (4)
  - CYANOSIS [None]
  - HYPOTENSION [None]
  - HYPOXIA [None]
  - MALAISE [None]
